FAERS Safety Report 9448714 (Version 1)
Quarter: 2013Q3

REPORT INFORMATION
  Report Type: Spontaneous
  Country: US (occurrence: US)
  Receive Date: 20130808
  Receipt Date: 20130808
  Transmission Date: 20140515
  Serious: No
  Sender: FDA-Public Use
  Company Number: US-PFIZER INC-US-WYE-H09948509

PATIENT
  Age: 81 Year
  Sex: Female
  Weight: 57.14 kg

DRUGS (6)
  1. ALAVERT [Suspect]
     Indication: HYPERSENSITIVITY
     Dosage: 1 TABLET, ONE TIME PER DAY
     Route: 048
     Dates: start: 200906
  2. ALAVERT [Suspect]
     Indication: PRURITUS
     Dosage: 10 MG, DAILY
     Route: 048
  3. ALAVERT [Suspect]
     Indication: SNEEZING
  4. ALAVERT [Suspect]
     Indication: EYE PRURITUS
  5. ALAVERT [Suspect]
     Indication: LACRIMATION INCREASED
  6. ZOCOR [Concomitant]
     Dosage: UNK

REACTIONS (1)
  - Drug ineffective [Unknown]
